FAERS Safety Report 24246703 (Version 1)
Quarter: 2024Q3

REPORT INFORMATION
  Report Type: Report from Study
  Country: US (occurrence: US)
  Receive Date: 20240825
  Receipt Date: 20240825
  Transmission Date: 20241017
  Serious: Yes (Other)
  Sender: ABBVIE
  Company Number: US-ABBVIE-5889094

PATIENT
  Age: 60 Year
  Sex: Male

DRUGS (1)
  1. SKYRIZI [Suspect]
     Active Substance: RISANKIZUMAB-RZAA
     Indication: Psoriasis
     Route: 058
     Dates: start: 20211111

REACTIONS (2)
  - Surgical failure [Not Recovered/Not Resolved]
  - Device placement issue [Not Recovered/Not Resolved]

NARRATIVE: CASE EVENT DATE: 20230801
